FAERS Safety Report 10476821 (Version 2)
Quarter: 2014Q4

REPORT INFORMATION
  Report Type: Report from Study
  Country: CA (occurrence: CA)
  Receive Date: 20140926
  Receipt Date: 20141010
  Transmission Date: 20150528
  Serious: Yes (Hospitalization)
  Sender: FDA-Public Use
  Company Number: CA-AMGEN-CANSP2014073043

PATIENT
  Age: 25 Year
  Sex: Male

DRUGS (1)
  1. NEUPOGEN [Suspect]
     Active Substance: FILGRASTIM
     Indication: TESTICULAR GERM CELL TUMOUR MIXED
     Dosage: 1.6ML/480MCG 5 VIALS, 12 REPEATS, UNK
     Route: 065
     Dates: start: 20140417

REACTIONS (2)
  - Rhabdomyosarcoma [Not Recovered/Not Resolved]
  - Mediastinal mass [Unknown]

NARRATIVE: CASE EVENT DATE: 20140911
